FAERS Safety Report 7450811-3 (Version None)
Quarter: 2011Q2

REPORT INFORMATION
  Report Type: 
  Country: None (occurrence: None)
  Receive Date: 20110429
  Receipt Date: 20110429
  Transmission Date: 20111010
  Serious: Yes (Other)
  Sender: FDA-Public Use
  Company Number: None

PATIENT
  Sex: Female
  Weight: 81.6475 kg

DRUGS (2)
  1. BUPIRONE [Suspect]
  2. BUSPAR [Suspect]
     Indication: ANXIETY
     Dosage: 5 MG. 2 A DAY

REACTIONS (8)
  - HEADACHE [None]
  - FATIGUE [None]
  - CHEST PAIN [None]
  - NERVOUSNESS [None]
  - RESTLESSNESS [None]
  - TREMOR [None]
  - DYSPNOEA [None]
  - INSOMNIA [None]
